FAERS Safety Report 5408960-7 (Version None)
Quarter: 2007Q3

REPORT INFORMATION
  Report Type: 
  Country: None (occurrence: None)
  Receive Date: 20070713
  Receipt Date: 20070328
  Transmission Date: 20080115
  Serious: Yes (Hospitalization)
  Sender: FDA-Public Use
  Company Number: US-JNJFOC-20060801042

PATIENT
  Age: 20 Year
  Sex: Female
  Weight: 79.3795 kg

DRUGS (2)
  1. ORTHO EVRA [Suspect]
     Indication: DRUG USE FOR UNKNOWN INDICATION
     Route: 062
     Dates: start: 20050801, end: 20060220
  2. HERBAL MEDICATION                 (HERBAL PREPARATION) [Concomitant]

REACTIONS (1)
  - PULMONARY EMBOLISM [None]
